FAERS Safety Report 4905481-2 (Version None)
Quarter: 2006Q1

REPORT INFORMATION
  Report Type: 
  Country: None (occurrence: None)
  Receive Date: 20060203
  Receipt Date: 20060126
  Transmission Date: 20060701
  Serious: Yes (Hospitalization, Other)
  Sender: FDA-Public Use
  Company Number: 200600830

PATIENT
  Age: 37 Year
  Sex: Female
  Weight: 70.3075 kg

DRUGS (2)
  1. BOTOX COSMETIC [Suspect]
     Indication: SKIN WRINKLING
     Dates: start: 20050901, end: 20050901
  2. BOTOX COSMETIC [Suspect]
     Indication: SKIN WRINKLING
     Dates: start: 20041101, end: 20041101

REACTIONS (12)
  - ABORTION SPONTANEOUS [None]
  - CHEST DISCOMFORT [None]
  - DRUG EXPOSURE DURING PREGNANCY [None]
  - DYSPNOEA [None]
  - EYE INFECTION [None]
  - EYELID DISORDER [None]
  - EYELID OEDEMA [None]
  - FATIGUE [None]
  - FIBRIN D DIMER INCREASED [None]
  - MUSCLE ATROPHY [None]
  - SENSATION OF HEAVINESS [None]
  - WEIGHT DECREASED [None]
